FAERS Safety Report 8814550 (Version 1)
Quarter: 2012Q4

REPORT INFORMATION
  Report Type: 
  Country: JP (occurrence: JP)
  Receive Date: 20120928
  Receipt Date: 20120928
  Transmission Date: 20130627
  Serious: Yes (Other)
  Sender: FDA-Public Use
  Company Number: JP-TEVA-360563ISR

PATIENT
  Age: 35 Year
  Sex: Female

DRUGS (3)
  1. PREDNISOLONE [Suspect]
     Indication: SYSTEMIC LUPUS ERYTHEMATOSUS
     Dosage: 50 Milligram Daily;
     Route: 065
  2. PREDNISOLONE [Suspect]
     Indication: SYSTEMIC LUPUS ERYTHEMATOSUS
     Route: 065
  3. RISPERIDONE [Suspect]
     Indication: AFFECTIVE DISORDER
     Dosage: 1 Milligram Daily;
     Route: 065

REACTIONS (2)
  - Affective disorder [Recovered/Resolved]
  - Dyslipidaemia [Unknown]
